FAERS Safety Report 9842104 (Version 3)
Quarter: 2014Q2

REPORT INFORMATION
  Report Type: Spontaneous
  Country: US (occurrence: US)
  Receive Date: 20140124
  Receipt Date: 20140519
  Transmission Date: 20141212
  Serious: Yes (Death, Hospitalization, Other)
  Sender: FDA-Public Use
  Company Number: US-GILEAD-2014-0092854

PATIENT
  Age: 64 Year
  Sex: Male

DRUGS (8)
  1. LETAIRIS [Suspect]
     Indication: PULMONARY HYPERTENSION
     Dosage: 5 MG, QD
     Dates: start: 201312
  2. LETAIRIS [Suspect]
     Indication: COR PULMONALE CHRONIC
  3. LETAIRIS [Suspect]
     Indication: CARDIAC VALVE DISEASE
  4. LETAIRIS [Suspect]
     Indication: CHRONIC OBSTRUCTIVE PULMONARY DISEASE
  5. LETAIRIS [Suspect]
     Indication: BRONCHITIS
  6. LETAIRIS [Suspect]
     Indication: EXTRANODAL MARGINAL ZONE B-CELL LYMPHOMA (MALT TYPE)
  7. LETAIRIS [Suspect]
     Indication: HYPOXIA
  8. LETAIRIS [Suspect]
     Indication: PULMONARY VASCULAR DISORDER

REACTIONS (3)
  - Pneumonia [Unknown]
  - Progressive multifocal leukoencephalopathy [Unknown]
  - Brain neoplasm [Fatal]
